FAERS Safety Report 7870604-2 (Version None)
Quarter: 2011Q3

REPORT INFORMATION
  Report Type: 
  Country: None (occurrence: None)
  Receive Date: 20110628
  Receipt Date: 20110622
  Transmission Date: 20111222
  Serious: Yes (Disabling)
  Sender: FDA-Public Use
  Company Number: 2011SP008871

PATIENT
  Age: 17 Year
  Sex: Female
  Weight: 58.9676 kg

DRUGS (1)
  1. IMPLANON [Suspect]
     Indication: PRODUCT USED FOR UNKNOWN INDICATION
     Dosage: 1 DF
     Dates: start: 20100430

REACTIONS (10)
  - MIGRAINE [None]
  - ALOPECIA [None]
  - DIZZINESS [None]
  - WEIGHT DECREASED [None]
  - VOMITING [None]
  - LETHARGY [None]
  - VAGINAL HAEMORRHAGE [None]
  - RESPIRATORY DISORDER [None]
  - CHEST PAIN [None]
  - PAIN [None]
